FAERS Safety Report 20841108 (Version 1)
Quarter: 2022Q2

REPORT INFORMATION
  Report Type: Spontaneous
  Country: US (occurrence: US)
  Receive Date: 20220517
  Receipt Date: 20220517
  Transmission Date: 20220720
  Serious: No
  Sender: FDA-Public Use
  Company Number: US-PFIZER INC-202200133188

PATIENT
  Age: 58 Year
  Sex: Male
  Weight: 102.06 kg

DRUGS (1)
  1. BENZONATATE [Suspect]
     Active Substance: BENZONATATE
     Indication: Cough
     Dosage: 100 MG

REACTIONS (1)
  - Drug ineffective [Not Recovered/Not Resolved]
